FAERS Safety Report 15290628 (Version 1)
Quarter: 2018Q4

REPORT INFORMATION
  Report Type: Report from Study
  Country: ES (occurrence: ES)
  Receive Date: 20180817
  Receipt Date: 20180817
  Transmission Date: 20190204
  Serious: Yes (Hospitalization)
  Sender: FDA-Public Use
  Company Number: ES-TEVA-2018-ES-942693

PATIENT
  Age: 15 Year
  Sex: Male
  Weight: 53.6 kg

DRUGS (4)
  1. DEXAMETASONA KERN PHARMA 4 MG/ML SOLUCION INYECTABLE EFG , 3 AMPOLLAS [Suspect]
     Active Substance: DEXAMETHASONE
     Indication: ACUTE LYMPHOCYTIC LEUKAEMIA RECURRENT
     Route: 042
     Dates: start: 20170906, end: 20170910
  2. ETOPOSIDO (518A) [Suspect]
     Active Substance: ETOPOSIDE
     Indication: ACUTE LYMPHOCYTIC LEUKAEMIA RECURRENT
     Route: 042
     Dates: start: 20170908, end: 20170910
  3. CITARABINA (124A) [Suspect]
     Active Substance: CYTARABINE
     Indication: ACUTE LYMPHOCYTIC LEUKAEMIA RECURRENT
     Dosage: 3100 MILLIEQUIVALENTS DAILY;
     Route: 042
     Dates: start: 20170906, end: 20170908
  4. ERWINA - ERWINASE 10.000 UI INYECTABLE [REINO UNIDO] [Suspect]
     Active Substance: ASPARAGINASE
     Indication: ACUTE LYMPHOCYTIC LEUKAEMIA RECURRENT
     Route: 030
     Dates: start: 20170911, end: 20170921

REACTIONS (2)
  - Thrombocytopenia [Recovered/Resolved]
  - Febrile neutropenia [Recovered/Resolved]

NARRATIVE: CASE EVENT DATE: 20170913
